FAERS Safety Report 8978256 (Version 2)
Quarter: 2013Q2

REPORT INFORMATION
  Report Type: Spontaneous
  Country: CH (occurrence: CH)
  Receive Date: 20121220
  Receipt Date: 20130416
  Transmission Date: 20140414
  Serious: Yes (Life-Threatening, Disabling)
  Sender: FDA-Public Use
  Company Number: CH-ABBOTT-12P-151-1024595-00

PATIENT
  Age: 52 Year
  Sex: Male

DRUGS (6)
  1. DEPAKINE [Suspect]
     Indication: PRODUCT USED FOR UNKNOWN INDICATION
     Dates: end: 2012
  2. DEPAKINE [Suspect]
     Dates: start: 2012
  3. NOVALGINE [Suspect]
     Indication: HEADACHE
     Dates: start: 20121102, end: 20121102
  4. LAMOTRIGINE [Suspect]
     Indication: PRODUCT USED FOR UNKNOWN INDICATION
     Dates: start: 20120829
  5. ESCITALOPRAM [Concomitant]
     Indication: PRODUCT USED FOR UNKNOWN INDICATION
  6. AMLODIPINE [Concomitant]
     Indication: PRODUCT USED FOR UNKNOWN INDICATION

REACTIONS (9)
  - Grand mal convulsion [Not Recovered/Not Resolved]
  - Drug ineffective [Not Recovered/Not Resolved]
  - Stevens-Johnson syndrome [Unknown]
  - Headache [Recovered/Resolved]
  - Renal failure acute [Recovering/Resolving]
  - Transaminases increased [Unknown]
  - Rash maculo-papular [Unknown]
  - Pyrexia [Unknown]
  - Systemic inflammatory response syndrome [Recovered/Resolved]
